FAERS Safety Report 8378764-4 (Version None)
Quarter: 2012Q2

REPORT INFORMATION
  Report Type: 
  Country: None (occurrence: None)
  Receive Date: 20120522
  Receipt Date: 20120509
  Transmission Date: 20120825
  Serious: Yes (Death, Hospitalization, Disabling, Other)
  Sender: FDA-Public Use
  Company Number: US-MYLANLABS-2009AC000352

PATIENT
  Age: 88 Year
  Sex: Female
  Weight: 72.58 kg

DRUGS (10)
  1. POTASSIUM CHLORIDE [Concomitant]
  2. DIGOXIN [Suspect]
     Route: 048
     Dates: start: 20070401, end: 20070801
  3. FLEXERIL [Concomitant]
  4. CARDIZEM [Concomitant]
     Dosage: DRIP
  5. LOVENOX [Concomitant]
  6. THYROID HORMONES [Concomitant]
  7. LASIX [Concomitant]
  8. DILTIAZEM [Concomitant]
  9. DIOVAN [Concomitant]
  10. REQUIP [Concomitant]

REACTIONS (38)
  - INJURY [None]
  - DIZZINESS [None]
  - LETHARGY [None]
  - HYPERTENSION [None]
  - NEUROLOGICAL SYMPTOM [None]
  - SOMNOLENCE [None]
  - HEMIPLEGIA [None]
  - PULMONARY VASCULAR DISORDER [None]
  - HIP ARTHROPLASTY [None]
  - RESTLESS LEGS SYNDROME [None]
  - CEREBRAL INFARCTION [None]
  - CARDIOMEGALY [None]
  - PNEUMONIA [None]
  - PULMONARY CONGESTION [None]
  - PALPITATIONS [None]
  - HAEMORRHAGE INTRACRANIAL [None]
  - CEREBRAL ARTERY OCCLUSION [None]
  - HEMIPARESIS [None]
  - ALTERED STATE OF CONSCIOUSNESS [None]
  - RESTLESSNESS [None]
  - DYSPNOEA [None]
  - CARDIAC FAILURE CONGESTIVE [None]
  - CEREBROVASCULAR ACCIDENT [None]
  - BLOOD PRESSURE SYSTOLIC INCREASED [None]
  - ECONOMIC PROBLEM [None]
  - NECK PAIN [None]
  - BREATH SOUNDS ABNORMAL [None]
  - ILL-DEFINED DISORDER [None]
  - DEATH [None]
  - FALL [None]
  - VIITH NERVE PARALYSIS [None]
  - MUSCLE SPASMS [None]
  - DYSARTHRIA [None]
  - ATRIAL FIBRILLATION [None]
  - HYPOKALAEMIA [None]
  - FATIGUE [None]
  - APHASIA [None]
  - BRAIN SCAN ABNORMAL [None]
